FAERS Safety Report 4974198-0 (Version None)
Quarter: 2006Q2

REPORT INFORMATION
  Report Type: 
  Country: None (occurrence: None)
  Receive Date: 20060417
  Receipt Date: 20060104
  Transmission Date: 20061013
  Serious: Yes (Hospitalization, Disabling)
  Sender: FDA-Public Use
  Company Number: US-MERCK-0601USA00377

PATIENT
  Age: 50 Year
  Sex: Male
  Weight: 116 kg

DRUGS (2)
  1. VIOXX [Suspect]
     Indication: JOINT INJURY
     Route: 048
     Dates: start: 20030227, end: 20031101
  2. VIOXX [Suspect]
     Route: 048
     Dates: start: 20030227, end: 20031101

REACTIONS (8)
  - BLOOD CHOLESTEROL INCREASED [None]
  - DEEP VEIN THROMBOSIS [None]
  - FOOT OPERATION [None]
  - GASTROINTESTINAL DISORDER [None]
  - HYPERTENSION [None]
  - PRESCRIBED OVERDOSE [None]
  - PULMONARY EMBOLISM [None]
  - SLEEP APNOEA SYNDROME [None]
